FAERS Safety Report 15980428 (Version 1)
Quarter: 2019Q1

REPORT INFORMATION
  Report Type: Spontaneous
  Country: US (occurrence: US)
  Receive Date: 20190124
  Receipt Date: 20190124
  Transmission Date: 20190418
  Serious: No
  Sender: FDA-Public Use
  Company Number: None

PATIENT
  Age: 46 Year
  Sex: Male

DRUGS (1)
  1. TYSABRI [Suspect]
     Active Substance: NATALIZUMAB
     Indication: MULTIPLE SCLEROSIS
     Route: 042
     Dates: start: 20181205, end: 20190103

REACTIONS (4)
  - Infusion related reaction [None]
  - Chills [None]
  - Hyperthermia [None]
  - Flushing [None]

NARRATIVE: CASE EVENT DATE: 20190103
